FAERS Safety Report 4293825-7 (Version None)
Quarter: 2004Q1

REPORT INFORMATION
  Report Type: 
  Country: None (occurrence: None)
  Receive Date: 20040126
  Receipt Date: 20031021
  Transmission Date: 20041129
  Serious: No
  Sender: FDA-Public Use
  Company Number: USA031049423

PATIENT
  Age: 67 Year
  Sex: Female
  Weight: 77 kg

DRUGS (11)
  1. FORTEO [Suspect]
     Indication: OSTEOPOROSIS
     Dosage: 20 UG/DAY
     Dates: start: 20030918
  2. DARVOCET-N 100 [Concomitant]
  3. PREDNISONE [Concomitant]
  4. INDERAL [Concomitant]
  5. AMITRIPTYLINE HCL [Concomitant]
  6. FUROSEMIDE [Concomitant]
  7. ZOLOFT [Concomitant]
  8. RANITIDINE [Concomitant]
  9. POTASSIUM CHLORIDE [Concomitant]
  10. METHOTREXATE [Concomitant]
  11. CALCIUM [Concomitant]

REACTIONS (5)
  - ASTHENIA [None]
  - DIZZINESS [None]
  - EAR DISORDER [None]
  - HEADACHE [None]
  - MULTIPLE ALLERGIES [None]
